FAERS Safety Report 4542911-2 (Version None)
Quarter: 2004Q4

REPORT INFORMATION
  Report Type: 
  Country: None (occurrence: None)
  Receive Date: 20041229
  Receipt Date: 20041217
  Transmission Date: 20050328
  Serious: Yes (Death, Hospitalization, Other)
  Sender: FDA-Public Use
  Company Number: 2004114861

PATIENT
  Sex: Female

DRUGS (2)
  1. LIPITOR [Suspect]
     Indication: ILL-DEFINED DISORDER
     Dosage: 80 MG
  2. PRAVASTATIN SODIUM [Suspect]
     Indication: ILL-DEFINED DISORDER
     Dosage: 80 MG

REACTIONS (3)
  - DIALYSIS [None]
  - RENAL FAILURE [None]
  - RHABDOMYOLYSIS [None]
